FAERS Safety Report 6261182-2 (Version None)
Quarter: 2009Q3

REPORT INFORMATION
  Report Type: 
  Country: None (occurrence: None)
  Receive Date: 20090709
  Receipt Date: 20080820
  Transmission Date: 20100115
  Serious: No
  Sender: FDA-Public Use
  Company Number: US-KINGPHARMUSA00001-K200800991

PATIENT
  Sex: Female

DRUGS (4)
  1. LEVOXYL [Suspect]
     Indication: AUTOIMMUNE THYROIDITIS
     Dosage: 88 MCG, QD
     Route: 048
     Dates: start: 20030101, end: 20080709
  2. AVAPRO [Concomitant]
     Indication: HYPERTENSION
  3. LIPITOR [Concomitant]
     Dosage: UNK, UNK
  4. VITAMINS                           /90003601/ [Concomitant]

REACTIONS (1)
  - BLOOD THYROID STIMULATING HORMONE DECREASED [None]
